FAERS Safety Report 20125566 (Version 2)
Quarter: 2022Q1

REPORT INFORMATION
  Report Type: Report from Study
  Country: DE (occurrence: DE)
  Receive Date: 20211129
  Receipt Date: 20220225
  Transmission Date: 20220423
  Serious: Yes (Hospitalization, Other)
  Sender: FDA-Public Use
  Company Number: DE-SHIRE-DE201928985

PATIENT
  Age: 50 Year
  Sex: Female
  Weight: 110 kg

DRUGS (27)
  1. PARATHYROID HORMONE [Suspect]
     Active Substance: PARATHYROID HORMONE
     Indication: Hypoparathyroidism
     Dosage: 75 MICROGRAM, QD
     Route: 058
     Dates: start: 20181105, end: 20190811
  2. PARATHYROID HORMONE [Suspect]
     Active Substance: PARATHYROID HORMONE
     Indication: Hypoparathyroidism
     Dosage: 75 MICROGRAM, QD
     Route: 058
     Dates: start: 20181105, end: 20190811
  3. PARATHYROID HORMONE [Suspect]
     Active Substance: PARATHYROID HORMONE
     Indication: Hypoparathyroidism
     Dosage: 75 MICROGRAM, QD
     Route: 058
     Dates: start: 20181105, end: 20190811
  4. PARATHYROID HORMONE [Suspect]
     Active Substance: PARATHYROID HORMONE
     Dosage: 100 MICROGRAM, QD
     Route: 058
     Dates: start: 20190812, end: 20190824
  5. PARATHYROID HORMONE [Suspect]
     Active Substance: PARATHYROID HORMONE
     Dosage: 100 MICROGRAM, QD
     Route: 058
     Dates: start: 20190812, end: 20190824
  6. PARATHYROID HORMONE [Suspect]
     Active Substance: PARATHYROID HORMONE
     Dosage: 100 MICROGRAM, QD
     Route: 058
     Dates: start: 20190812, end: 20190824
  7. PARATHYROID HORMONE [Suspect]
     Active Substance: PARATHYROID HORMONE
     Dosage: 75 MICROGRAM, QD
     Route: 058
     Dates: start: 20190825
  8. PARATHYROID HORMONE [Suspect]
     Active Substance: PARATHYROID HORMONE
     Dosage: 75 MICROGRAM, QD
     Route: 058
     Dates: start: 20190825
  9. PARATHYROID HORMONE [Suspect]
     Active Substance: PARATHYROID HORMONE
     Dosage: 75 MICROGRAM, QD
     Route: 058
     Dates: start: 20190825
  10. PARATHYROID HORMONE [Suspect]
     Active Substance: PARATHYROID HORMONE
     Dosage: 75 MICROGRAM, QD
     Route: 058
     Dates: start: 20181105
  11. PARATHYROID HORMONE [Suspect]
     Active Substance: PARATHYROID HORMONE
     Dosage: 75 MICROGRAM, QD
     Route: 058
     Dates: start: 20181105
  12. PARATHYROID HORMONE [Suspect]
     Active Substance: PARATHYROID HORMONE
     Dosage: 75 MICROGRAM, QD
     Route: 058
     Dates: start: 20181105
  13. PARATHYROID HORMONE [Suspect]
     Active Substance: PARATHYROID HORMONE
     Dosage: 50 MICROGRAM, QD
     Route: 058
     Dates: start: 20181105
  14. PARATHYROID HORMONE [Suspect]
     Active Substance: PARATHYROID HORMONE
     Dosage: 50 MICROGRAM, QD
     Route: 058
     Dates: start: 20181105
  15. PARATHYROID HORMONE [Suspect]
     Active Substance: PARATHYROID HORMONE
     Dosage: 50 MICROGRAM, QD
     Route: 058
     Dates: start: 20181105
  16. PARATHYROID HORMONE [Suspect]
     Active Substance: PARATHYROID HORMONE
     Dosage: 50 MICROGRAM, BID
     Route: 058
     Dates: start: 20181105
  17. PARATHYROID HORMONE [Suspect]
     Active Substance: PARATHYROID HORMONE
     Dosage: 50 MICROGRAM, BID
     Route: 058
     Dates: start: 20181105
  18. PARATHYROID HORMONE [Suspect]
     Active Substance: PARATHYROID HORMONE
     Dosage: 50 MICROGRAM, BID
     Route: 058
     Dates: start: 20181105
  19. LEVOTHYROXINE SODIUM [Concomitant]
     Active Substance: LEVOTHYROXINE SODIUM
     Indication: Thyroidectomy
     Dosage: 125 MICROGRAM, QD
     Route: 048
  20. MAGNESIUM [Concomitant]
     Active Substance: MAGNESIUM
     Indication: Hypoparathyroidism
     Dosage: 40 MILLIGRAM, QD
     Route: 048
  21. CHOLECALCIFEROL [Concomitant]
     Active Substance: CHOLECALCIFEROL
     Indication: Hypoparathyroidism
     Dosage: 1000 INTERNATIONAL UNIT, QD
     Route: 048
  22. BISOPROLOL [Concomitant]
     Active Substance: BISOPROLOL
     Indication: Hypertonia
     Dosage: 5 MILLIGRAM, QD
     Route: 048
  23. BISOPROLOL [Concomitant]
     Active Substance: BISOPROLOL
     Indication: Hypertension
  24. VALSARTAN [Concomitant]
     Active Substance: VALSARTAN
     Indication: Hypertonia
     Dosage: 80 MILLIGRAM, QD
     Route: 048
  25. VALSARTAN [Concomitant]
     Active Substance: VALSARTAN
     Indication: Hypertension
  26. ESTRADIOL [Concomitant]
     Active Substance: ESTRADIOL
     Indication: Menopausal symptoms
     Dosage: 1 DOSAGE FORM
  27. MAGNESIUM ASPARTATE HYDROCHLORIDE [Concomitant]
     Active Substance: MAGNESIUM ASPARTATE HYDROCHLORIDE
     Indication: Magnesium deficiency
     Dosage: 15 MILLIMOLE, QD
     Route: 048
     Dates: start: 20190808

REACTIONS (7)
  - Muscle spasms [Recovered/Resolved]
  - Nephrolithiasis [Not Recovered/Not Resolved]
  - Alopecia [Not Recovered/Not Resolved]
  - Onychoclasis [Recovered/Resolved]
  - Blood calcium increased [Recovered/Resolved]
  - Cholelithiasis [Not Recovered/Not Resolved]
  - Off label use [Not Recovered/Not Resolved]

NARRATIVE: CASE EVENT DATE: 20190731
